FAERS Safety Report 14607766 (Version 5)
Quarter: 2018Q3

REPORT INFORMATION
  Report Type: Report from Study
  Country: DE (occurrence: DE)
  Receive Date: 20180307
  Receipt Date: 20180904
  Transmission Date: 20181010
  Serious: Yes (Hospitalization, Other)
  Sender: FDA-Public Use
  Company Number: DE-PFIZER INC-2018088790

PATIENT
  Age: 58 Year
  Sex: Female

DRUGS (12)
  1. NO SUBJECT DRUG [Suspect]
     Active Substance: UNSPECIFIED INGREDIENT
     Dosage: NO DOSE GIVEN
  2. METHOTREXATE SODIUM. [Suspect]
     Active Substance: METHOTREXATE SODIUM
     Dosage: UNK
     Route: 065
     Dates: start: 2017
  3. LEFLUNOMIDE. [Suspect]
     Active Substance: LEFLUNOMIDE
     Dosage: 15 MG, UNK
     Route: 065
     Dates: start: 2017
  4. SULFASALAZINE DELAYED?RELEASE [Suspect]
     Active Substance: SULFASALAZINE
     Dosage: 3000 DF, UNK
     Route: 065
     Dates: start: 2018
  5. QUENSYL [Suspect]
     Active Substance: HYDROXYCHLOROQUINE
     Dosage: 400 MG, GIVEN 2017,2018
     Dates: start: 2017
  6. METHOTREXATE SODIUM. [Suspect]
     Active Substance: METHOTREXATE SODIUM
     Indication: RHEUMATOID ARTHRITIS
     Dosage: 25 MG, UNK
     Route: 065
     Dates: start: 20150101, end: 2017
  7. QUENSYL [Suspect]
     Active Substance: HYDROXYCHLOROQUINE
     Dosage: 400 MG, GIVEN 2017,2018
     Dates: start: 2018
  8. SULFASALAZINE DELAYED?RELEASE [Suspect]
     Active Substance: SULFASALAZINE
     Dosage: 2000 DF, UNK
     Route: 065
     Dates: start: 2017
  9. MABTHERA [Suspect]
     Active Substance: RITUXIMAB
     Indication: RHEUMATOID ARTHRITIS
     Dosage: 1000 MG, UNK
     Route: 042
     Dates: start: 201605, end: 201605
  10. LEFLUNOMIDE. [Suspect]
     Active Substance: LEFLUNOMIDE
     Dosage: 15 MG, UNK
     Route: 065
     Dates: end: 2017
  11. HUMIRA [Suspect]
     Active Substance: ADALIMUMAB
     Indication: RHEUMATOID ARTHRITIS
     Dosage: 40 MG, UNK
     Route: 058
     Dates: start: 20140901, end: 20150101
  12. HYDROXYCHLOROQUINE [Concomitant]
     Active Substance: HYDROXYCHLOROQUINE
     Dosage: UNK
     Route: 065

REACTIONS (8)
  - Intervertebral disc protrusion [Unknown]
  - Hypogammaglobulinaemia [Unknown]
  - Nerve root compression [Unknown]
  - Mucosal inflammation [Unknown]
  - Deep vein thrombosis [Unknown]
  - Foot fracture [Unknown]
  - Bacteriuria [Unknown]
  - Stomatitis [Unknown]

NARRATIVE: CASE EVENT DATE: 20170515
